FAERS Safety Report 17074526 (Version 1)
Quarter: 2019Q4

REPORT INFORMATION
  Report Type: Spontaneous
  Country: GB (occurrence: GB)
  Receive Date: 20191126
  Receipt Date: 20191126
  Transmission Date: 20200122
  Serious: Yes (Other)
  Sender: FDA-Public Use
  Company Number: GB-TEVA-2019-GB-1140967

PATIENT
  Age: 87 Year
  Sex: Female
  Weight: 62 kg

DRUGS (8)
  1. OMEPRAZOLE. [Concomitant]
     Active Substance: OMEPRAZOLE
     Dosage: 1 DOSAGE FORMS
     Dates: start: 20180920, end: 20181018
  2. CALCICHEW D3 [Concomitant]
     Active Substance: CALCIUM\CHOLECALCIFEROL
     Dosage: 2 DOSAGE FORMS
     Dates: start: 20160919
  3. AMOXICILLIN. [Suspect]
     Active Substance: AMOXICILLIN
     Dosage: 1500 MG PER DAY
     Dates: start: 20181105
  4. DOXYCYCLINE. [Concomitant]
     Active Substance: DOXYCYCLINE
     Dosage: 2 NOW, THEN ONE DAILY PLEASE STOP CALCICHEW, 1 DOSAGE FORMS
     Dates: start: 20181106
  5. ZOPICLONE [Concomitant]
     Active Substance: ZOPICLONE
     Dosage: NIGHT (NO MORE THAN 3 NIGHTS IN A ROW), 1 DOSAGE FORMS
     Dates: start: 20180529
  6. PARACETAMOL [Concomitant]
     Active Substance: ACETAMINOPHEN
     Dosage: TAKE 1 OR 2 4 TIMES/DAY.
     Dates: start: 20170913
  7. LEVOTHYROXINE. [Concomitant]
     Active Substance: LEVOTHYROXINE
     Dosage: MORNING, 1 DOSAGE FORMS
     Dates: start: 20180607
  8. PROCHLORPERAZINE. [Concomitant]
     Active Substance: PROCHLORPERAZINE
     Dosage: 3 DOSAGE FORMS
     Dates: start: 20181029

REACTIONS (1)
  - Lip swelling [Recovered/Resolved]

NARRATIVE: CASE EVENT DATE: 20181106
